FAERS Safety Report 12703621 (Version 3)
Quarter: 2016Q4

REPORT INFORMATION
  Report Type: Report from Study
  Country: BR (occurrence: BR)
  Receive Date: 20160831
  Receipt Date: 20161122
  Transmission Date: 20170207
  Serious: Yes (Hospitalization, Other)
  Sender: FDA-Public Use
  Company Number: BR-JNJFOC-20160822984

PATIENT
  Age: 66 Year
  Sex: Female

DRUGS (2)
  1. REMICADE [Suspect]
     Active Substance: INFLIXIMAB
     Indication: CROHN^S DISEASE
     Route: 042
     Dates: start: 20160616
  2. REMICADE [Suspect]
     Active Substance: INFLIXIMAB
     Indication: CROHN^S DISEASE
     Route: 042
     Dates: start: 20160630

REACTIONS (12)
  - Crohn^s disease [Unknown]
  - Asthenia [Unknown]
  - Diarrhoea [Unknown]
  - Intestinal tuberculosis [Unknown]
  - Vomiting [Unknown]
  - Hyperhidrosis [Unknown]
  - Crohn^s disease [Unknown]
  - Renal tuberculosis [Unknown]
  - Nausea [Unknown]
  - Abdominal distension [Unknown]
  - Change of bowel habit [Unknown]
  - Drug ineffective [Unknown]

NARRATIVE: CASE EVENT DATE: 201606
